FAERS Safety Report 6020509-7 (Version None)
Quarter: 2008Q4

REPORT INFORMATION
  Report Type: 
  Country: None (occurrence: None)
  Receive Date: 20081226
  Receipt Date: 20081217
  Transmission Date: 20090506
  Serious: Yes (Other)
  Sender: FDA-Public Use
  Company Number: AT-ABBOTT-08P-009-0490108-00

PATIENT
  Age: 66 Year
  Sex: Female
  Weight: 70 kg

DRUGS (2)
  1. HUMIRA [Suspect]
     Indication: RHEUMATOID ARTHRITIS
     Route: 058
     Dates: start: 20080401
  2. HUMIRA [Suspect]
     Indication: VASCULITIS
     Dosage: HUMIRA PEN
     Dates: end: 20081101

REACTIONS (3)
  - ABDOMINAL RIGIDITY [None]
  - DIARRHOEA [None]
  - MUSCLE SPASMS [None]
